FAERS Safety Report 20699892 (Version 2)
Quarter: 2024Q3

REPORT INFORMATION
  Report Type: Report from Study
  Country: BR (occurrence: BR)
  Receive Date: 20220412
  Receipt Date: 20240814
  Transmission Date: 20241016
  Serious: Yes (Other)
  Sender: TAKEDA
  Company Number: BR-TAKEDA-2021TUS068833

PATIENT
  Sex: Male

DRUGS (2)
  1. ANTI-INHIBITOR COAGULANT COMPLEX [Suspect]
     Active Substance: ANTI-INHIBITOR COAGULANT COMPLEX
     Indication: Factor VIII deficiency
     Dosage: UNK
     Route: 042
  2. HEMO-8R [Suspect]
     Active Substance: ANTIHEMOPHILIC FACTOR, HUMAN RECOMBINANT
     Indication: Haemophilia A with anti factor VIII
     Dosage: 2000 INTERNATIONAL UNIT, QD
     Route: 042
     Dates: start: 201704

REACTIONS (5)
  - Factor VIII inhibition [Unknown]
  - Haemarthrosis [Unknown]
  - Gait disturbance [Unknown]
  - Pain [Unknown]
  - Joint swelling [Not Recovered/Not Resolved]
